FAERS Safety Report 18325036 (Version 1)
Quarter: 2020Q3

REPORT INFORMATION
  Report Type: Spontaneous
  Country: US (occurrence: US)
  Receive Date: 20200929
  Receipt Date: 20200929
  Transmission Date: 20201103
  Serious: No
  Sender: FDA-Public Use
  Company Number: US-PFIZER INC-2020372599

PATIENT
  Age: 33 Year
  Sex: Female

DRUGS (17)
  1. DOCETAXEL SAGENT [Suspect]
     Active Substance: DOCETAXEL
     Dosage: 115 UNK, CYCLIC (EVERY THREE WEEKS, 07 CYCLES)
     Dates: start: 20140207, end: 20140529
  2. DOCETAXEL SANOFI?AVENTIS [Suspect]
     Active Substance: DOCETAXEL
     Indication: BREAST CANCER METASTATIC
     Dosage: 145 UNK, CYCLIC (EVERY THREE WEEKS, 07 CYCLES)
     Dates: start: 20140207, end: 20140529
  3. DOCETAXEL SANOFI?AVENTIS [Suspect]
     Active Substance: DOCETAXEL
     Dosage: 130 UNK, CYCLIC (EVERY THREE WEEKS, 07 CYCLES)
     Dates: start: 20140207, end: 20140529
  4. DOCETAXEL. [Suspect]
     Active Substance: DOCETAXEL
     Indication: BREAST CANCER METASTATIC
     Dosage: 145 UNK, CYCLIC (EVERY THREE WEEKS, 07 CYCLES)
     Dates: start: 20140207, end: 20140529
  5. CYTOXAN [Concomitant]
     Active Substance: CYCLOPHOSPHAMIDE
     Indication: CHEMOTHERAPY
     Dosage: UNK
  6. DOCETAXEL. [Suspect]
     Active Substance: DOCETAXEL
     Dosage: 115 UNK, CYCLIC (EVERY THREE WEEKS, 07 CYCLES)
     Dates: start: 20140207, end: 20140529
  7. TAXOTERE [Concomitant]
     Active Substance: DOCETAXEL
     Indication: CHEMOTHERAPY
     Dosage: UNK
     Dates: start: 20140207, end: 20140529
  8. DOCETAXEL SANDOZ [Suspect]
     Active Substance: DOCETAXEL
     Indication: BREAST CANCER METASTATIC
     Dosage: 145 UNK, CYCLIC (EVERY THREE WEEKS, 07 CYCLES)
     Dates: start: 20140207, end: 20140529
  9. NEOSAR [Concomitant]
     Active Substance: CYCLOPHOSPHAMIDE
     Indication: CHEMOTHERAPY
     Dosage: UNK
  10. ADRIAMYCIN [Concomitant]
     Active Substance: DOXORUBICIN HYDROCHLORIDE
     Indication: CHEMOTHERAPY
     Dosage: UNK
  11. DOCETAXEL SANDOZ [Suspect]
     Active Substance: DOCETAXEL
     Dosage: 130 UNK, CYCLIC (EVERY THREE WEEKS, 07 CYCLES)
     Dates: start: 20140207, end: 20140529
  12. DOCETAXEL SANDOZ [Suspect]
     Active Substance: DOCETAXEL
     Dosage: 115 UNK, CYCLIC (EVERY THREE WEEKS, 07 CYCLES)
     Dates: start: 20140207, end: 20140529
  13. DOCETAXEL SAGENT [Suspect]
     Active Substance: DOCETAXEL
     Indication: BREAST CANCER METASTATIC
     Dosage: 145 UNK, CYCLIC (EVERY THREE WEEKS, 07 CYCLES)
     Dates: start: 20140207, end: 20140529
  14. DOCETAXEL SAGENT [Suspect]
     Active Substance: DOCETAXEL
     Dosage: 130 UNK, CYCLIC (EVERY THREE WEEKS, 07 CYCLES)
     Dates: start: 20140207, end: 20140529
  15. DOCETAXEL. [Suspect]
     Active Substance: DOCETAXEL
     Dosage: 130 UNK, CYCLIC (EVERY THREE WEEKS, 07 CYCLES)
     Dates: start: 20140207, end: 20140529
  16. DOCETAXEL SANOFI?AVENTIS [Suspect]
     Active Substance: DOCETAXEL
     Dosage: 115 UNK, CYCLIC (EVERY THREE WEEKS, 07 CYCLES)
     Dates: start: 20140207, end: 20140529
  17. DOXIL [Concomitant]
     Active Substance: DOXORUBICIN HYDROCHLORIDE
     Indication: CHEMOTHERAPY
     Dosage: UNK

REACTIONS (5)
  - Hair texture abnormal [Not Recovered/Not Resolved]
  - Hair colour changes [Not Recovered/Not Resolved]
  - Alopecia [Not Recovered/Not Resolved]
  - Madarosis [Not Recovered/Not Resolved]
  - Hair disorder [Not Recovered/Not Resolved]

NARRATIVE: CASE EVENT DATE: 20140217
